FAERS Safety Report 8694734 (Version 3)
Quarter: 2012Q4

REPORT INFORMATION
  Report Type: 
  Country: AT (occurrence: AT)
  Receive Date: 20120731
  Receipt Date: 20120907
  Transmission Date: 20130627
  Serious: Yes (Life-Threatening, Other)
  Sender: FDA-Public Use
  Company Number: AT-JNJFOC-20120713114

PATIENT
  Sex: Female
  Weight: 73 kg

DRUGS (3)
  1. XARELTO [Suspect]
     Indication: CEREBROVASCULAR ACCIDENT PROPHYLAXIS
     Route: 048
     Dates: start: 20120625, end: 20120722
  2. XARELTO [Suspect]
     Indication: ATRIAL FIBRILLATION
     Route: 048
     Dates: start: 20120625, end: 20120722
  3. SINTRON [Concomitant]
     Indication: ATRIAL FIBRILLATION

REACTIONS (5)
  - Cerebral haemorrhage [Recovered/Resolved]
  - Coma [Recovered/Resolved]
  - Aphasia [Unknown]
  - Aphagia [Unknown]
  - Paraparesis [Unknown]
